FAERS Safety Report 11516193 (Version 2)
Quarter: 2015Q3

REPORT INFORMATION
  Report Type: Spontaneous
  Country: US (occurrence: US)
  Receive Date: 20150917
  Receipt Date: 20150917
  Transmission Date: 20151125
  Serious: No
  Sender: FDA-Public Use
  Company Number: US-RB-077121-15

PATIENT

DRUGS (1)
  1. MUCINEX [Suspect]
     Active Substance: GUAIFENESIN
     Indication: LUNG DISORDER
     Dosage: DOSE UNK, UNITS UNK, FREQUENCY UNK
     Route: 065

REACTIONS (2)
  - Micturition disorder [Unknown]
  - Drug ineffective [Not Recovered/Not Resolved]
